FAERS Safety Report 25869163 (Version 1)
Quarter: 2025Q4

REPORT INFORMATION
  Report Type: Spontaneous
  Country: US (occurrence: None)
  Receive Date: 20251001
  Receipt Date: 20251001
  Transmission Date: 20260118
  Serious: Yes (Death)
  Sender: FDA-CTU
  Company Number: None

PATIENT
  Age: 79 Year
  Sex: Female

DRUGS (10)
  1. CYCLOPHOSPHAMIDE [Suspect]
     Active Substance: CYCLOPHOSPHAMIDE
     Indication: Ovarian cancer
     Dosage: 50 MG DAILY ORAL
     Route: 048
     Dates: start: 20250527
  2. CEFPODOXIME [Concomitant]
     Active Substance: CEFPODOXIME
     Dates: start: 20250913
  3. Aztthromycin [Concomitant]
     Dates: start: 20250913
  4. DOXYCYCLINE HYCLATE [Concomitant]
     Active Substance: DOXYCYCLINE HYCLATE
     Dates: start: 20250530
  5. LORAZEPAM [Concomitant]
     Active Substance: LORAZEPAM
  6. DEXAMETHASONE [Concomitant]
     Active Substance: DEXAMETHASONE
  7. FUROSEMIDE [Concomitant]
     Active Substance: FUROSEMIDE
  8. ALBUTEROL [Concomitant]
     Active Substance: ALBUTEROL
  9. Escilelopram [Concomitant]
  10. KEYTRUDA [Concomitant]
     Active Substance: PEMBROLIZUMAB

REACTIONS (1)
  - Death [None]

NARRATIVE: CASE EVENT DATE: 20250920
